FAERS Safety Report 4968627-6 (Version None)
Quarter: 2006Q2

REPORT INFORMATION
  Report Type: 
  Country: None (occurrence: None)
  Receive Date: 20060405
  Receipt Date: 20060328
  Transmission Date: 20061013
  Serious: Yes (Life-Threatening, Hospitalization)
  Sender: FDA-Public Use
  Company Number: 2006042217

PATIENT
  Age: 83 Year
  Sex: Male

DRUGS (3)
  1. NORVASC [Suspect]
     Indication: ILL-DEFINED DISORDER
     Dosage: 10 MG (10 MG, DAILY), ORAL
     Route: 048
     Dates: start: 20040101
  2. PLAVIX [Suspect]
     Indication: ILL-DEFINED DISORDER
     Dosage: 75 MG (75 MG, DAILY), ORAL
     Route: 048
     Dates: start: 20040101
  3. CARVEDILOL [Suspect]
     Dosage: 6.25 (6.25 MG, DAILY) ORAL
     Route: 048
     Dates: start: 20040101

REACTIONS (1)
  - PLEURAL EFFUSION [None]
